FAERS Safety Report 18836152 (Version 1)
Quarter: 2021Q1

REPORT INFORMATION
  Report Type: Spontaneous
  Country: US (occurrence: US)
  Receive Date: 20210203
  Receipt Date: 20210203
  Transmission Date: 20210419
  Serious: No
  Sender: FDA-Public Use
  Company Number: US-ALLERGAN-2004842US

PATIENT
  Age: 51 Year
  Sex: Female

DRUGS (2)
  1. CYMBALTA [Concomitant]
     Active Substance: DULOXETINE HYDROCHLORIDE
  2. BOTOX COSMETIC [Suspect]
     Active Substance: ONABOTULINUMTOXINA
     Indication: PRODUCT USED FOR UNKNOWN INDICATION
     Dosage: 14 UNITS, SINGLE
     Dates: start: 20200123, end: 20200123

REACTIONS (4)
  - Facial pain [Unknown]
  - Fatigue [Unknown]
  - Herpes zoster [Unknown]
  - Headache [Unknown]

NARRATIVE: CASE EVENT DATE: 20200126
